FAERS Safety Report 8046122-8 (Version None)
Quarter: 2012Q1

REPORT INFORMATION
  Report Type: 
  Country: None (occurrence: None)
  Receive Date: 20120113
  Receipt Date: 20120109
  Transmission Date: 20120608
  Serious: No
  Sender: FDA-Public Use
  Company Number: US-PFIZER INC-2012007184

PATIENT
  Sex: Female

DRUGS (3)
  1. LATUDA [Suspect]
     Indication: BIPOLAR DISORDER
     Dosage: 40 MG, 1X/DAY AT BEDTIME
     Dates: start: 20111206
  2. BUSPAR [Suspect]
     Indication: ANXIETY
     Dosage: 10 MG, 3X/DAY
     Dates: start: 20111206
  3. PRISTIQ [Suspect]
     Indication: DEPRESSION
     Dosage: 50 MG, 1X/DAY AT BEDTIME
     Route: 048
     Dates: start: 20111206

REACTIONS (5)
  - FEELING ABNORMAL [None]
  - INSOMNIA [None]
  - MUSCLE TWITCHING [None]
  - MYALGIA [None]
  - ABDOMINAL DISTENSION [None]
